FAERS Safety Report 16076306 (Version 1)
Quarter: 2019Q1

REPORT INFORMATION
  Report Type: Spontaneous
  Country: US (occurrence: US)
  Receive Date: 20190315
  Receipt Date: 20190315
  Transmission Date: 20190418
  Serious: No
  Sender: FDA-Public Use
  Company Number: US-PFIZER INC-2019109472

PATIENT
  Age: 71 Year
  Sex: Female
  Weight: 78.46 kg

DRUGS (2)
  1. GABAPENTIN. [Suspect]
     Active Substance: GABAPENTIN
     Indication: NEUROPATHY PERIPHERAL
     Dosage: 300 MG, 2X/DAY (300MG CAPSULE ONE IN THE MORNING AND ONE AT NIGHT)
  2. GABAPENTIN. [Suspect]
     Active Substance: GABAPENTIN
     Indication: DISCOMFORT

REACTIONS (2)
  - Product use in unapproved indication [Unknown]
  - Nervousness [Unknown]
